FAERS Safety Report 6924404-8 (Version None)
Quarter: 2010Q3

REPORT INFORMATION
  Report Type: 
  Country: None (occurrence: None)
  Receive Date: 20100728
  Receipt Date: 20100712
  Transmission Date: 20110219
  Serious: Yes (Hospitalization, Other)
  Sender: FDA-Public Use
  Company Number: GAM-163-10-US

PATIENT
  Age: 67 Year
  Sex: Male
  Weight: 107 kg

DRUGS (12)
  1. OCTAGAM [Suspect]
     Indication: DEMYELINATING POLYNEUROPATHY
     Dosage: 120GM IV EVERY 3 WEEKS
     Route: 042
     Dates: start: 20100528, end: 20100528
  2. OCTAGAM [Suspect]
     Indication: DEMYELINATING POLYNEUROPATHY
     Dosage: 120GM IV EVERY 3 WEEKS
     Dates: start: 20100618, end: 20100618
  3. TOPROL-XL [Concomitant]
  4. LOPRESSOR [Concomitant]
  5. CLARITIN [Concomitant]
  6. ASTELIN [Suspect]
  7. FLONASE [Concomitant]
  8. SUDAFED S.A. [Concomitant]
  9. BENADRYL [Concomitant]
  10. TYLENOL (CAPLET) [Concomitant]
  11. VESICARE [Concomitant]
  12. PRIMIDONE [Concomitant]

REACTIONS (6)
  - DEEP VEIN THROMBOSIS [None]
  - FATIGUE [None]
  - HEADACHE [None]
  - MUSCULAR WEAKNESS [None]
  - NAUSEA [None]
  - PULMONARY EMBOLISM [None]
